FAERS Safety Report 17956121 (Version 3)
Quarter: 2020Q3

REPORT INFORMATION
  Report Type: Spontaneous
  Country: US (occurrence: US)
  Receive Date: 20200629
  Receipt Date: 20200731
  Transmission Date: 20201103
  Serious: No
  Sender: FDA-Public Use
  Company Number: US-PFIZER INC-2018003807

PATIENT
  Age: 30 Year
  Sex: Female

DRUGS (3)
  1. ELELYSO [Suspect]
     Active Substance: TALIGLUCERASE ALFA
     Dosage: UNK
  2. ELELYSO [Suspect]
     Active Substance: TALIGLUCERASE ALFA
     Dosage: UNK
     Dates: end: 20171205
  3. ELELYSO [Suspect]
     Active Substance: TALIGLUCERASE ALFA
     Dosage: UNK

REACTIONS (4)
  - Chest pain [Unknown]
  - Product dose omission issue [Unknown]
  - Maternal exposure during pregnancy [Unknown]
  - Chest discomfort [Unknown]

NARRATIVE: CASE EVENT DATE: 20171219
